FAERS Safety Report 7798813-1 (Version None)
Quarter: 2011Q4

REPORT INFORMATION
  Report Type: 
  Country: None (occurrence: None)
  Receive Date: 20111005
  Receipt Date: 20111005
  Transmission Date: 20120403
  Serious: Yes (Hospitalization)
  Sender: FDA-Public Use
  Company Number: None

PATIENT
  Sex: Female
  Weight: 129.9 kg

DRUGS (1)
  1. CYTARABINE [Suspect]
     Dosage: 42000 MG
     Dates: end: 20100130

REACTIONS (3)
  - BACTERIAL INFECTION [None]
  - BLOOD CULTURE POSITIVE [None]
  - FEBRILE NEUTROPENIA [None]
